FAERS Safety Report 19695822 (Version 2)
Quarter: 2021Q3

REPORT INFORMATION
  Report Type: Spontaneous
  Country: US (occurrence: US)
  Receive Date: 20210813
  Receipt Date: 20210818
  Transmission Date: 20211014
  Serious: No
  Sender: FDA-Public Use
  Company Number: US-BIOGEN-2018BI00548634

PATIENT
  Sex: Female

DRUGS (1)
  1. TECFIDERA [Suspect]
     Active Substance: DIMETHYL FUMARATE
     Indication: MULTIPLE SCLEROSIS
     Dosage: MAINTENANCE DOSE
     Route: 050
     Dates: start: 20171024, end: 202011

REACTIONS (8)
  - Confusional state [Unknown]
  - Rash pruritic [Not Recovered/Not Resolved]
  - Memory impairment [Unknown]
  - Dementia [Unknown]
  - Seasonal allergy [Unknown]
  - Product dose omission issue [Unknown]
  - Fatigue [Unknown]
  - Hypersensitivity [Unknown]
